FAERS Safety Report 12094887 (Version 1)
Quarter: 2016Q1

REPORT INFORMATION
  Report Type: Spontaneous
  Country: IT (occurrence: IT)
  Receive Date: 20160219
  Receipt Date: 20160219
  Transmission Date: 20160526
  Serious: Yes (Hospitalization)
  Sender: FDA-Public Use
  Company Number: IT-PERNIX THERAPEUTICS-2015PT000144

PATIENT

DRUGS (3)
  1. OKI [Suspect]
     Active Substance: KETOPROFEN LYSINE
     Indication: EAR INFECTION
     Dosage: 80 MG, AS NEEDED
     Route: 048
     Dates: start: 20150403, end: 20150403
  2. DAFLON                             /01026201/ [Concomitant]
     Active Substance: DIOSMIN\HESPERIDIN
     Dosage: 500 MG, UNK
  3. ISOCEF [Suspect]
     Active Substance: CEFTIBUTEN
     Indication: EAR INFECTION
     Dosage: 400 MG, CYCLICAL
     Route: 048
     Dates: start: 20150403, end: 20150403

REACTIONS (1)
  - Urticaria [Recovering/Resolving]

NARRATIVE: CASE EVENT DATE: 20150403
